FAERS Safety Report 9721252 (Version 2)
Quarter: 2014Q1

REPORT INFORMATION
  Report Type: Spontaneous
  Country: US (occurrence: US)
  Receive Date: 20131129
  Receipt Date: 20140324
  Transmission Date: 20141002
  Serious: Yes (Other)
  Sender: FDA-Public Use
  Company Number: US-PFIZER INC-2013338373

PATIENT
  Age: 67 Year
  Sex: Female
  Weight: 68 kg

DRUGS (10)
  1. PREMARIN [Suspect]
     Indication: MENOPAUSAL SYMPTOMS
     Dosage: 0.3 MG, 1X/DAY
     Route: 048
  2. PREMARIN [Suspect]
     Dosage: 0.45 MG, 1X/DAY
     Route: 048
  3. PREMARIN [Suspect]
     Dosage: 0.625 MG, 1X/DAY
     Route: 048
  4. PREMARIN [Suspect]
     Dosage: 0.45 MG, 1X/DAY
     Route: 048
  5. SIMVASTATIN [Concomitant]
     Dosage: UNK
  6. OXYBUTYNIN [Concomitant]
     Dosage: UNK
  7. VENTOLIN HFA [Concomitant]
     Dosage: 2 DF, 3X/DAY
  8. OMEPRAZOLE [Concomitant]
  9. DIPRIVAN [Concomitant]
  10. ASPIRIN ^BAYER^ [Concomitant]
     Dosage: 81 MG, UNK

REACTIONS (22)
  - Vaginal haemorrhage [Unknown]
  - Biliary dyskinesia [Unknown]
  - Gastric polyps [Unknown]
  - Gastrointestinal haemorrhage [Unknown]
  - Non-alcoholic steatohepatitis [Unknown]
  - Urinary tract infection [Unknown]
  - Upper respiratory tract infection [Recovered/Resolved]
  - Diverticulum [Unknown]
  - Blood cholesterol increased [Unknown]
  - Blood cholesterol decreased [Unknown]
  - Blood triglycerides increased [Unknown]
  - Hepatic enzyme increased [Unknown]
  - Chest pain [Unknown]
  - Dyspnoea [Unknown]
  - Headache [Unknown]
  - Pain in extremity [Unknown]
  - Syncope [Unknown]
  - Dizziness [Unknown]
  - Anaemia [Unknown]
  - Pharyngeal erythema [Unknown]
  - Musculoskeletal discomfort [Unknown]
  - Cough [Unknown]
